FAERS Safety Report 17846930 (Version 1)
Quarter: 2020Q2

REPORT INFORMATION
  Report Type: Spontaneous
  Country: US (occurrence: US)
  Receive Date: 20200601
  Receipt Date: 20200601
  Transmission Date: 20200714
  Serious: Yes (Death)
  Sender: FDA-Public Use
  Company Number: None

PATIENT
  Age: 28 Year
  Sex: Female

DRUGS (15)
  1. VALACYCLOVIR [Concomitant]
     Active Substance: VALACYCLOVIR HYDROCHLORIDE
  2. ALBUTEROL HFA INH [Concomitant]
  3. SF 1.1% MINT GEL [Concomitant]
  4. VENCLEXTA [Concomitant]
     Active Substance: VENETOCLAX
  5. BUDESONIDE. [Concomitant]
     Active Substance: BUDESONIDE
  6. EPIPEN [Concomitant]
     Active Substance: EPINEPHRINE
  7. ONDANSETRON [Concomitant]
     Active Substance: ONDANSETRON
  8. TACROLIMUS. [Suspect]
     Active Substance: TACROLIMUS
     Indication: ORGAN TRANSPLANT
     Dosage: ?          OTHER FREQUENCY:TK 1 C PO Q 12 H;?
     Route: 048
     Dates: start: 20200429
  9. HYDROCORTISONE. [Concomitant]
     Active Substance: HYDROCORTISONE
  10. PROMETHAZINE [Concomitant]
     Active Substance: PROMETHAZINE HYDROCHLORIDE
  11. BENADRYL [Concomitant]
     Active Substance: DIPHENHYDRAMINE HYDROCHLORIDE
  12. DAPSONE. [Concomitant]
     Active Substance: DAPSONE
  13. OXYCODONE [Concomitant]
     Active Substance: OXYCODONE
  14. PREDNISOLONE. [Concomitant]
     Active Substance: PREDNISOLONE
  15. LORAZEPAM. [Concomitant]
     Active Substance: LORAZEPAM

REACTIONS (1)
  - Death [None]
